FAERS Safety Report 8661507 (Version 2)
Quarter: 2012Q4

REPORT INFORMATION
  Report Type: 
  Country: US (occurrence: US)
  Receive Date: 20120712
  Receipt Date: 20120926
  Transmission Date: 20130627
  Serious: Yes (Other)
  Sender: FDA-Public Use
  Company Number: US-PFIZER INC-2012165925

PATIENT
  Age: 60 Year
  Sex: Female
  Weight: 45 kg

DRUGS (7)
  1. NORVASC [Suspect]
     Indication: REYNOLD^S SYNDROME
     Dosage: 2.5 mg, 1x/day
     Route: 048
     Dates: start: 1996
  2. NORVASC [Suspect]
     Dosage: 5 mg, 1x/day
     Route: 048
  3. NORVASC [Suspect]
     Dosage: 10 mg, 1x/day
     Route: 048
  4. AMLODIPINE BESILATE [Suspect]
     Indication: REYNOLD^S SYNDROME
     Dosage: 10 mg, 1x/day
     Route: 048
  5. CALCIUM [Concomitant]
     Dosage: UNK
  6. IRON [Concomitant]
     Dosage: UNK
  7. ZANAFLEX [Concomitant]
     Dosage: UNK

REACTIONS (3)
  - Coeliac disease [Unknown]
  - Skin disorder [Unknown]
  - Skin lesion [Unknown]
